FAERS Safety Report 23749774 (Version 1)
Quarter: 2024Q2

REPORT INFORMATION
  Report Type: Spontaneous
  Country: US (occurrence: US)
  Receive Date: 20240416
  Receipt Date: 20240416
  Transmission Date: 20240716
  Serious: Yes (Other)
  Sender: FDA-Public Use
  Company Number: US-DRL-USA-LIT/USA/24/0005676

PATIENT
  Age: 29 Year
  Sex: Female

DRUGS (3)
  1. COLCHICINE [Suspect]
     Active Substance: COLCHICINE
     Indication: Pericarditis
  2. PREDNISONE [Suspect]
     Active Substance: PREDNISONE
     Indication: Pericarditis
  3. ANAKINRA [Suspect]
     Active Substance: ANAKINRA
     Indication: Pericarditis

REACTIONS (2)
  - Exposure during pregnancy [Unknown]
  - Drug ineffective [Unknown]
